FAERS Safety Report 19724888 (Version 3)
Quarter: 2021Q3

REPORT INFORMATION
  Report Type: Spontaneous
  Country: JP (occurrence: JP)
  Receive Date: 20210819
  Receipt Date: 20210827
  Transmission Date: 20211014
  Serious: Yes (Hospitalization, Other)
  Sender: FDA-Public Use
  Company Number: JP-PFIZER INC-202101050522

PATIENT
  Age: 49 Year
  Sex: Male
  Weight: 59.5 kg

DRUGS (17)
  1. L?CARBOCISTEINE [Concomitant]
     Active Substance: CARBOCYSTEINE
     Dosage: 500 MG, Q8H
     Route: 048
  2. MEKTOVI [Suspect]
     Active Substance: BINIMETINIB
     Dosage: 45 MG, Q12H
     Route: 048
     Dates: start: 20210816
  3. DAIPHEN [Suspect]
     Active Substance: SULFAMETHOXAZOLE\TRIMETHOPRIM
     Indication: ANTIFUNGAL PROPHYLAXIS
  4. THYRADIN S [Concomitant]
     Active Substance: LEVOTHYROXINE SODIUM
     Indication: HYPOTHYROIDISM
     Dosage: 150 UG, EVERYDAY
     Route: 048
  5. DECADRON [Concomitant]
     Active Substance: DEXAMETHASONE
     Dosage: 2 MG, EVERYDAY
     Route: 048
     Dates: start: 20210629, end: 20210629
  6. BRAFTOVI [Suspect]
     Active Substance: ENCORAFENIB
     Dosage: 450 MG, EVERYDAY
     Route: 048
     Dates: start: 20210816
  7. DECADRON [Concomitant]
     Active Substance: DEXAMETHASONE
     Dosage: 4 MG, EVERYDAY
     Dates: start: 20210729
  8. BRAFTOVI [Suspect]
     Active Substance: ENCORAFENIB
     Indication: PAPILLARY THYROID CANCER
     Dosage: 450 MG, EVERYDAY
     Route: 048
     Dates: start: 20210714, end: 20210806
  9. MEKTOVI [Suspect]
     Active Substance: BINIMETINIB
     Indication: PAPILLARY THYROID CANCER
     Dosage: 45 MG, Q12H
     Route: 048
     Dates: start: 20210714, end: 20210806
  10. DECADRON [Concomitant]
     Active Substance: DEXAMETHASONE
     Indication: LYMPHANGIOSIS CARCINOMATOSA
     Dosage: 6.6 MG
     Route: 041
     Dates: start: 20210630, end: 20210729
  11. DAIPHEN [Suspect]
     Active Substance: SULFAMETHOXAZOLE\TRIMETHOPRIM
     Indication: ANTIFUNGAL PROPHYLAXIS
     Dosage: 1 DF, EVERYDAY
     Route: 048
     Dates: start: 20210714, end: 20210806
  12. NAIXAN [NAPROXEN] [Concomitant]
     Active Substance: NAPROXEN
     Indication: ANALGESIC THERAPY
     Dosage: 200 MG, Q8H
     Route: 048
     Dates: start: 20210714
  13. AZILVA [Concomitant]
     Active Substance: AZILSARTAN KAMEDOXOMIL
     Indication: HYPERTENSION
     Dosage: 20 MG, EVERYDAY
     Route: 048
  14. L?CARBOCISTEINE [Concomitant]
     Active Substance: CARBOCYSTEINE
     Indication: PRODUCTIVE COUGH
     Dosage: 10 MG, EVERYDAY
     Route: 048
  15. DECADRON [Concomitant]
     Active Substance: DEXAMETHASONE
     Indication: LYMPHANGIOSIS CARCINOMATOSA
     Dosage: 4 MG, EVERYDAY
     Route: 048
     Dates: start: 20210624, end: 20210628
  16. ELIQUIS [Concomitant]
     Active Substance: APIXABAN
     Indication: THROMBOSIS
     Dosage: 10 MG, Q12H
     Route: 048
     Dates: start: 20210805
  17. TAKECAB [Concomitant]
     Active Substance: VONOPRAZAN FUMARATE
     Indication: GASTRITIS PROPHYLAXIS
     Dosage: 20 MG, EVERYDAY
     Route: 048

REACTIONS (3)
  - Off label use [Unknown]
  - Anaemia [Recovering/Resolving]
  - Febrile neutropenia [Recovered/Resolved]

NARRATIVE: CASE EVENT DATE: 20210714
